FAERS Safety Report 14514441 (Version 1)
Quarter: 2018Q1

REPORT INFORMATION
  Report Type: Spontaneous
  Country: ES (occurrence: ES)
  Receive Date: 20180209
  Receipt Date: 20180209
  Transmission Date: 20180509
  Serious: Yes (Life-Threatening)
  Sender: FDA-Public Use
  Company Number: PHHY2018ES020621

PATIENT
  Age: 71 Year
  Sex: Female

DRUGS (6)
  1. MEROPENEM. [Interacting]
     Active Substance: MEROPENEM
     Indication: PNEUMONIA
     Dosage: 2 G C/8H
     Route: 042
  2. PIPERACILLIN [Interacting]
     Active Substance: PIPERACILLIN
     Indication: PNEUMONIA
     Dosage: 4 G C/8H
     Route: 042
  3. LINEZOLID. [Suspect]
     Active Substance: LINEZOLID
     Indication: PNEUMONIA
     Dosage: 600 MG, UNK
     Route: 042
  4. CLEXANE [Concomitant]
     Active Substance: ENOXAPARIN SODIUM
     Indication: PRODUCT USED FOR UNKNOWN INDICATION
     Dosage: 40 MG C/24H
     Route: 058
  5. SALBUAIR [Concomitant]
     Indication: PNEUMONIA
     Dosage: 2.5 UNK, UNK
     Route: 055
  6. IPRATROPIO BROMURO [Concomitant]
     Active Substance: IPRATROPIUM BROMIDE
     Indication: PNEUMONIA
     Dosage: 500 MCG C/8HG
     Route: 055

REACTIONS (3)
  - Leukopenia [Recovered/Resolved with Sequelae]
  - Dyspnoea [Recovered/Resolved with Sequelae]
  - Relapsing fever [Recovered/Resolved with Sequelae]

NARRATIVE: CASE EVENT DATE: 20170217
